FAERS Safety Report 5125286-X (Version None)
Quarter: 2006Q4

REPORT INFORMATION
  Report Type: 
  Country: None (occurrence: None)
  Receive Date: 20061006
  Receipt Date: 20060925
  Transmission Date: 20070319
  Serious: Yes (Other)
  Sender: FDA-Public Use
  Company Number: 2006117042

PATIENT
  Age: 63 Year
  Sex: Female
  Weight: 48.5349 kg

DRUGS (5)
  1. CHANTIX [Suspect]
     Indication: SMOKING CESSATION THERAPY
     Dosage: 1 MG (0.5 MG, 2 IN 1 D), ORAL
     Route: 048
     Dates: start: 20060906, end: 20060913
  2. ZOCOR [Concomitant]
  3. KLONOPIN [Concomitant]
  4. ALL OTHER THERAPEUTIC PRODUCTS (ALL OTHER THERAPEUTIC PRODUCTS) [Concomitant]
  5. MULTI-VITAMINS [Concomitant]

REACTIONS (1)
  - HAEMOPTYSIS [None]
